FAERS Safety Report 5276971-0 (Version None)
Quarter: 2007Q1

REPORT INFORMATION
  Report Type: 
  Country: None (occurrence: None)
  Receive Date: 20070327
  Receipt Date: 20070314
  Transmission Date: 20070707
  Serious: Yes (Hospitalization, Other)
  Sender: FDA-Public Use
  Company Number: JP-PFIZER INC-2005161362

PATIENT
  Sex: Male
  Weight: 47 kg

DRUGS (7)
  1. SOLU-MEDROL [Suspect]
     Indication: JUVENILE ARTHRITIS
     Route: 042
  2. NEORAL [Suspect]
     Indication: JUVENILE ARTHRITIS
     Route: 048
  3. PREDNISOLONE [Suspect]
     Indication: JUVENILE ARTHRITIS
     Dosage: DAILY DOSE:10MG-FREQ:UNKNOWN
     Route: 065
     Dates: start: 20040306, end: 20050601
  4. METHOTREXATE [Concomitant]
     Route: 065
  5. BRUFEN [Concomitant]
     Route: 048
  6. CIMETIDINE HCL [Concomitant]
     Route: 048
  7. ALFAROL [Concomitant]
     Route: 048

REACTIONS (1)
  - REVERSIBLE POSTERIOR LEUKOENCEPHALOPATHY SYNDROME [None]
